FAERS Safety Report 6476825-8 (Version None)
Quarter: 2009Q4

REPORT INFORMATION
  Report Type: 
  Country: None (occurrence: None)
  Receive Date: 20091207
  Receipt Date: 20091127
  Transmission Date: 20100525
  Serious: Yes (Death)
  Sender: FDA-Public Use
  Company Number: JP-ROCHE-672590

PATIENT
  Age: 20 Year
  Sex: Male

DRUGS (1)
  1. TAMIFLU [Suspect]
     Dosage: START DATE OF DRUG: 25 NOVEMBER 2009
     Route: 048
     Dates: start: 20091101, end: 20091101

REACTIONS (2)
  - DISEASE PROGRESSION [None]
  - H1N1 INFLUENZA [None]
